FAERS Safety Report 7622113-3 (Version None)
Quarter: 2011Q3

REPORT INFORMATION
  Report Type: 
  Country: None (occurrence: None)
  Receive Date: 20110720
  Receipt Date: 20110314
  Transmission Date: 20111222
  Serious: Yes (Hospitalization, Other)
  Sender: FDA-Public Use
  Company Number: US-BAYER-201038082NA

PATIENT
  Age: 31 Year
  Sex: Female
  Weight: 74.83 kg

DRUGS (21)
  1. CYTOMEL [Concomitant]
     Indication: HYPOTHYROIDISM
     Dosage: UNK
     Dates: start: 20091001, end: 20100501
  2. METOPROLOL TARTRATE [Concomitant]
     Dosage: UNK
     Dates: end: 20090131
  3. PERCOCET [Concomitant]
     Dosage: UNK
     Dates: end: 20090131
  4. NSAID'S [Concomitant]
  5. YASMIN [Suspect]
     Indication: PREMENSTRUAL SYNDROME
  6. COUMADIN [Concomitant]
     Indication: DEEP VEIN THROMBOSIS
     Dosage: 5 MG, UNK
     Dates: start: 20081001, end: 20090123
  7. THYROID PREPARATIONS [Concomitant]
     Dosage: UNK
  8. TYLENOL-500 [Concomitant]
     Dosage: UNK
  9. EXCEDRIN (MIGRAINE) [Concomitant]
     Dosage: UNK
  10. DROSPIRENONE AND ETHINYL ESTRADIOL [Suspect]
     Indication: PRODUCT USED FOR UNKNOWN INDICATION
  11. COUMADIN [Concomitant]
     Dosage: UNK
     Dates: start: 20090129
  12. LEVOXYL [Concomitant]
     Indication: HYPOTHYROIDISM
     Dosage: UNK
     Dates: start: 20090401
  13. PEPCID [Concomitant]
     Dosage: UNK
     Dates: end: 20091030
  14. COUMADIN [Concomitant]
     Dosage: UNK
     Dates: start: 20080901
  15. Q PUMP [Concomitant]
     Dosage: UNK
     Dates: end: 20090201
  16. YAZ [Suspect]
     Indication: CONTRACEPTION
     Dosage: 1 U, QD
     Dates: start: 20071001, end: 20081001
  17. YAZ [Suspect]
     Indication: PREMENSTRUAL SYNDROME
  18. YASMIN [Suspect]
     Indication: CONTRACEPTION
     Dosage: 1 U, QD
     Dates: start: 20071001, end: 20081001
  19. AMIODARONE HCL [Concomitant]
     Indication: HEART RATE ABNORMAL
     Dosage: UNK
     Dates: start: 20090129, end: 20090131
  20. AMOXICILLIN [Concomitant]
     Dosage: UNK
  21. DARVOCET [Concomitant]
     Dosage: UNK

REACTIONS (15)
  - PAIN [None]
  - PARTIAL SEIZURES [None]
  - APHASIA [None]
  - DEEP VEIN THROMBOSIS [None]
  - OEDEMA PERIPHERAL [None]
  - BURNING SENSATION [None]
  - DYSPNOEA [None]
  - TRANSIENT ISCHAEMIC ATTACK [None]
  - THORACOTOMY [None]
  - DYSARTHRIA [None]
  - HEMIANOPIA [None]
  - VIITH NERVE PARALYSIS [None]
  - DIZZINESS [None]
  - SYNCOPE [None]
  - VISUAL ACUITY REDUCED [None]
